FAERS Safety Report 8775222 (Version 3)
Quarter: 2013Q1

REPORT INFORMATION
  Report Type: Spontaneous
  Country: GR (occurrence: GR)
  Receive Date: 20120910
  Receipt Date: 20130322
  Transmission Date: 20140127
  Serious: Yes (Hospitalization)
  Sender: FDA-Public Use
  Company Number: GR-AMGEN-GRCSP2012056278

PATIENT
  Age: 81 Year
  Sex: Female
  Weight: 65 kg

DRUGS (2)
  1. PROLIA [Suspect]
     Indication: OSTEOPOROSIS
     Dosage: 60 MG, Q6MO
     Route: 058
     Dates: start: 201201, end: 201207
  2. CALCIUM VITAMIN D [Concomitant]

REACTIONS (1)
  - Hypercalcaemia [Recovering/Resolving]
